FAERS Safety Report 19276174 (Version 3)
Quarter: 2021Q2

REPORT INFORMATION
  Report Type: Spontaneous
  Country: FR (occurrence: FR)
  Receive Date: 20210520
  Receipt Date: 20210529
  Transmission Date: 20210717
  Serious: Yes (Other)
  Sender: FDA-Public Use
  Company Number: FR-AUROBINDO-AUR-APL-2021-020370

PATIENT
  Age: 34 Year
  Sex: Male
  Weight: 48 kg

DRUGS (2)
  1. VALGANCICLOVIR. [Suspect]
     Active Substance: VALGANCICLOVIR
     Indication: INFECTION
     Dosage: 450 MILLIGRAM, EVERY OTHER DAY
     Route: 048
     Dates: start: 20210401, end: 20210411
  2. BACTRIM [Suspect]
     Active Substance: SULFAMETHOXAZOLE\TRIMETHOPRIM
     Indication: POST PROCEDURAL INFECTION
     Dosage: 1200MG OR 800 MG PER DAY
     Route: 048
     Dates: start: 20210331, end: 20210412

REACTIONS (3)
  - Overdose [Unknown]
  - Thrombocytopenia [Recovering/Resolving]
  - Condition aggravated [Recovering/Resolving]

NARRATIVE: CASE EVENT DATE: 20210404
